FAERS Safety Report 6251640-9 (Version None)
Quarter: 2009Q2

REPORT INFORMATION
  Report Type: 
  Country: None (occurrence: None)
  Receive Date: 20090626
  Receipt Date: 20090626
  Transmission Date: 20091009
  Serious: Yes (Other)
  Sender: FDA-Public Use
  Company Number: None

PATIENT
  Age: 51 Year
  Sex: Male
  Weight: 83.9154 kg

DRUGS (1)
  1. ZICAM NO DRIP LIQUID NASAL GEL  NONE LISTED ZICAM [Suspect]
     Indication: INFLUENZA
     Dosage: 1 SQUEEZE PER NOSTRIL TWICE PER DAY
     Dates: start: 20090523, end: 20090602

REACTIONS (2)
  - AGEUSIA [None]
  - ANOSMIA [None]
